FAERS Safety Report 9941530 (Version 1)
Quarter: 2014Q1

REPORT INFORMATION
  Report Type: Report from Study
  Country: US (occurrence: US)
  Receive Date: 20140303
  Receipt Date: 20140303
  Transmission Date: 20141002
  Serious: No
  Sender: FDA-Public Use
  Company Number: US-ABBVIE-13P-163-1043037-00

PATIENT
  Age: 24 Year
  Sex: Male

DRUGS (2)
  1. HUMIRA [Suspect]
     Indication: ANKYLOSING SPONDYLITIS
     Dates: start: 201201
  2. IBUPROFEN [Concomitant]
     Indication: PRODUCT USED FOR UNKNOWN INDICATION

REACTIONS (5)
  - Oedema peripheral [Unknown]
  - Ocular hyperaemia [Not Recovered/Not Resolved]
  - Nasopharyngitis [Unknown]
  - Drug dose omission [Unknown]
  - Arthralgia [Unknown]
